FAERS Safety Report 6387740-2 (Version None)
Quarter: 2009Q4

REPORT INFORMATION
  Report Type: 
  Country: None (occurrence: None)
  Receive Date: 20091005
  Receipt Date: 20090929
  Transmission Date: 20100525
  Serious: Yes (Hospitalization)
  Sender: FDA-Public Use
  Company Number: FR-ROCHE-659429

PATIENT
  Sex: Male

DRUGS (7)
  1. ROCEPHIN [Suspect]
     Indication: PROSTATITIS
     Route: 065
     Dates: start: 20090705
  2. CIFLOX [Suspect]
     Indication: PROSTATITIS
     Route: 065
     Dates: start: 20090705
  3. DEPAKENE [Concomitant]
     Route: 048
  4. DRIPTANE [Concomitant]
     Route: 048
  5. LEVOTHYROXINE SODIUM [Concomitant]
     Indication: HYPOTHYROIDISM
     Route: 048
  6. ZYLORIC [Concomitant]
     Indication: HYPERURICAEMIA
     Route: 048
  7. TIMOPTIC [Concomitant]
     Indication: GLAUCOMA
     Route: 048

REACTIONS (4)
  - ACUTE GENERALISED EXANTHEMATOUS PUSTULOSIS [None]
  - CHOLESTASIS [None]
  - CYTOLYTIC HEPATITIS [None]
  - TOXIC SKIN ERUPTION [None]
